FAERS Safety Report 16937551 (Version 2)
Quarter: 2019Q4

REPORT INFORMATION
  Report Type: Spontaneous
  Country: IT (occurrence: IT)
  Receive Date: 20191018
  Receipt Date: 20191218
  Transmission Date: 20200122
  Serious: No
  Sender: FDA-Public Use
  Company Number: IT-ASTRAZENECA-2019SF44169

PATIENT
  Age: 89 Year
  Sex: Male

DRUGS (2)
  1. LASIX [Suspect]
     Active Substance: FUROSEMIDE
     Route: 065
  2. QUETIAPINE. [Suspect]
     Active Substance: QUETIAPINE
     Route: 048

REACTIONS (2)
  - Hypotension [Unknown]
  - Loss of consciousness [Unknown]

NARRATIVE: CASE EVENT DATE: 20190912
